FAERS Safety Report 14318647 (Version 1)
Quarter: 2017Q4

REPORT INFORMATION
  Report Type: Spontaneous
  Country: US (occurrence: US)
  Receive Date: 20171222
  Receipt Date: 20171222
  Transmission Date: 20180321
  Serious: No
  Sender: FDA-Public Use
  Company Number: US-SA-2017SA252893

PATIENT
  Age: 64 Year
  Sex: Female

DRUGS (2)
  1. BORTEZOMIB [Concomitant]
     Active Substance: BORTEZOMIB
     Route: 065
     Dates: start: 201707
  2. MOZOBIL [Suspect]
     Active Substance: PLERIXAFOR
     Route: 058
     Dates: start: 20170714, end: 20170717

REACTIONS (1)
  - Feeling abnormal [Not Recovered/Not Resolved]

NARRATIVE: CASE EVENT DATE: 20170714
